FAERS Safety Report 8624304-1 (Version None)
Quarter: 2012Q3

REPORT INFORMATION
  Report Type: 
  Country: None (occurrence: None)
  Receive Date: 20120824
  Receipt Date: 20120824
  Transmission Date: 20120928
  Serious: No
  Sender: FDA-Public Use
  Company Number: None

PATIENT
  Age: 58 Year
  Sex: Female

DRUGS (3)
  1. RIBAVIRIN [Suspect]
     Indication: HEPATITIS C
     Dosage: 1000 MG DAILY PO
     Route: 048
     Dates: start: 20120601, end: 20120801
  2. PEG-INTRON [Concomitant]
  3. INCIVEK [Concomitant]

REACTIONS (3)
  - DRUG INTOLERANCE [None]
  - FATIGUE [None]
  - FEELING ABNORMAL [None]
